FAERS Safety Report 25474188 (Version 1)
Quarter: 2025Q2

REPORT INFORMATION
  Report Type: Spontaneous
  Country: US (occurrence: US)
  Receive Date: 20250624
  Receipt Date: 20250624
  Transmission Date: 20250717
  Serious: No
  Sender: REGENERON
  Company Number: US-REGENERON PHARMACEUTICALS, INC.-2024-140954

PATIENT
  Sex: Male

DRUGS (4)
  1. EYLEA HD [Suspect]
     Active Substance: AFLIBERCEPT
     Indication: Neovascular age-related macular degeneration
     Dates: start: 20240201, end: 20240201
  2. EYLEA HD [Suspect]
     Active Substance: AFLIBERCEPT
     Dates: start: 20240312, end: 20240312
  3. EYLEA HD [Suspect]
     Active Substance: AFLIBERCEPT
     Dates: start: 20240516, end: 20240516
  4. EYLEA HD [Suspect]
     Active Substance: AFLIBERCEPT
     Dates: start: 20240917, end: 20240917

REACTIONS (1)
  - Injection site pain [Unknown]

NARRATIVE: CASE EVENT DATE: 20240201
